FAERS Safety Report 11456669 (Version 1)
Quarter: 2015Q3

REPORT INFORMATION
  Report Type: Spontaneous
  Country: US (occurrence: US)
  Receive Date: 20150903
  Receipt Date: 20150903
  Transmission Date: 20151125
  Serious: Yes (Other)
  Sender: FDA-Public Use
  Company Number: US-TAKEDA-2014TUS004727

PATIENT

DRUGS (8)
  1. ACTOS [Suspect]
     Active Substance: PIOGLITAZONE HYDROCHLORIDE
     Indication: TYPE 2 DIABETES MELLITUS
     Dosage: UNK
     Route: 048
     Dates: start: 200503, end: 200504
  2. AVANDIA [Concomitant]
     Active Substance: ROSIGLITAZONE MALEATE
     Dosage: 4 MG, BID
     Dates: start: 200504, end: 200706
  3. METFORMIN [Concomitant]
     Active Substance: METFORMIN HYDROCHLORIDE
     Dosage: 500 MG, BID
     Dates: start: 200504, end: 200707
  4. HUMALOG [Concomitant]
     Active Substance: INSULIN LISPRO
     Dosage: 35 CC DAILY TWO INJECTION
     Dates: start: 2005
  5. AVANDAMET [Concomitant]
     Active Substance: METFORMIN HYDROCHLORIDE\ROSIGLITAZONE MALEATE
     Indication: DIABETES MELLITUS
     Dosage: 500 MG, BID
     Dates: start: 200409, end: 20041023
  6. LANTUS [Concomitant]
     Active Substance: INSULIN GLARGINE
     Dosage: DURATION: 3-4 MONTHS AND DOSE: 35 CC DAILY TWO INJECTION
     Dates: start: 2005
  7. AMARYL [Concomitant]
     Active Substance: GLIMEPIRIDE
     Dosage: 4 MG, BID
     Dates: start: 200706
  8. AVANDAMET [Concomitant]
     Active Substance: METFORMIN HYDROCHLORIDE\ROSIGLITAZONE MALEATE
     Dosage: 1000 MG, BID
     Dates: start: 200411, end: 200502

REACTIONS (1)
  - Bladder cancer [Unknown]

NARRATIVE: CASE EVENT DATE: 200603
